FAERS Safety Report 4331999-X (Version None)
Quarter: 2004Q2

REPORT INFORMATION
  Report Type: 
  Country: None (occurrence: None)
  Receive Date: 20040405
  Receipt Date: 20031110
  Transmission Date: 20050107
  Serious: No
  Sender: FDA-Public Use
  Company Number: US-GLAXOSMITHKLINE-A0439016A

PATIENT
  Sex: Female

DRUGS (1)
  1. SEREVENT [Suspect]
     Route: 055
     Dates: start: 20030101

REACTIONS (1)
  - DRUG INEFFECTIVE [None]
